FAERS Safety Report 6904686-9 (Version None)
Quarter: 2010Q3

REPORT INFORMATION
  Report Type: 
  Country: None (occurrence: None)
  Receive Date: 20100804
  Receipt Date: 20090707
  Transmission Date: 20110219
  Serious: Yes (Other)
  Sender: FDA-Public Use
  Company Number: US-PFIZER INC-2009190505

PATIENT
  Sex: Female
  Weight: 65.76 kg

DRUGS (13)
  1. LYRICA [Suspect]
     Indication: NEURALGIA
     Dosage: UNK
     Dates: start: 20090201
  2. LYRICA [Suspect]
     Indication: FIBROMYALGIA
  3. NORCO [Concomitant]
     Dosage: 10MG/325MG, 3X/DAY
  4. SOMA [Concomitant]
     Indication: INSOMNIA
     Dosage: THREE TO FOUR TIMES DAILY
  5. HERBAL PREPARATION [Concomitant]
     Dosage: UNK
  6. WELLBUTRIN SR [Concomitant]
     Dosage: 100 MG, 2X/DAY
  7. CELEXA [Concomitant]
     Dosage: 40 MG, 1X/DAY
  8. ROZEREM [Concomitant]
     Indication: INSOMNIA
     Dosage: UNK
  9. IRON [Concomitant]
     Indication: IRON DEFICIENCY
     Dosage: UNK
  10. VITAMIN D [Concomitant]
     Dosage: UNK
  11. PRENATAL VITAMINS [Concomitant]
     Dosage: UNK
  12. MULTI-VITAMINS [Concomitant]
     Dosage: UNK
  13. FOLIC ACID [Concomitant]
     Indication: HAIR TEXTURE ABNORMAL
     Dosage: UNK

REACTIONS (6)
  - HEADACHE [None]
  - INCREASED APPETITE [None]
  - PAIN [None]
  - VAGINITIS BACTERIAL [None]
  - VITAMIN B12 DEFICIENCY [None]
  - WEIGHT INCREASED [None]
